FAERS Safety Report 14758220 (Version 1)
Quarter: 2018Q2

REPORT INFORMATION
  Report Type: Spontaneous
  Country: AR (occurrence: AR)
  Receive Date: 20180413
  Receipt Date: 20180413
  Transmission Date: 20180711
  Serious: Yes (Death, Other)
  Sender: FDA-Public Use
  Company Number: AR-BIOMARINAP-AR-2018-117784

PATIENT
  Age: 17 Year
  Sex: Female

DRUGS (1)
  1. ALDURAZYME [Suspect]
     Active Substance: LARONIDASE
     Indication: MUCOPOLYSACCHARIDOSIS I
     Dosage: 3 DF, UNK
     Route: 041
     Dates: start: 200604, end: 201608

REACTIONS (2)
  - Apallic syndrome [Unknown]
  - Respiratory arrest [Fatal]
